FAERS Safety Report 11217244 (Version 1)
Quarter: 2015Q2

REPORT INFORMATION
  Report Type: Spontaneous
  Country: US (occurrence: US)
  Receive Date: 20150625
  Receipt Date: 20150625
  Transmission Date: 20150821
  Serious: Yes (Other)
  Sender: FDA-Public Use
  Company Number: US-UCBSA-2015010387

PATIENT
  Age: 33 Year
  Sex: Male
  Weight: 59.4 kg

DRUGS (2)
  1. PHENOBARBITAL. [Concomitant]
     Active Substance: PHENOBARBITAL
     Indication: SEIZURE
     Dosage: 60 MG, 2X/DAY (BID)
     Route: 048
     Dates: start: 198012
  2. KEPPRA XR [Suspect]
     Active Substance: LEVETIRACETAM
     Indication: SEIZURE
     Dosage: 1500 MG, 2X/DAY (BID)
     Route: 048
     Dates: start: 201403

REACTIONS (4)
  - Generalised tonic-clonic seizure [Recovered/Resolved]
  - Inappropriate schedule of drug administration [Unknown]
  - Seizure [Unknown]
  - Thrombosis [Unknown]

NARRATIVE: CASE EVENT DATE: 201403
